FAERS Safety Report 5662763-7 (Version None)
Quarter: 2008Q1

REPORT INFORMATION
  Report Type: 
  Country: None (occurrence: None)
  Receive Date: 20080312
  Receipt Date: 20080306
  Transmission Date: 20080703
  Serious: Yes (Death, Hospitalization)
  Sender: FDA-Public Use
  Company Number: APP200800177

PATIENT
  Age: 83 Year
  Sex: Female
  Weight: 72 kg

DRUGS (7)
  1. HEPARIN SODIUM INJECTION [Suspect]
     Indication: PROPHYLAXIS
     Dates: start: 20040101, end: 20070101
  2. HEPARIN SODIUM INJECTION [Suspect]
     Indication: PROPHYLAXIS
     Dates: start: 20071101, end: 20071201
  3. HEPARIN SODIUM [Suspect]
     Indication: ANTICOAGULANT THERAPY
     Dosage: 15000 USP UNITIS (5000 USP UNITS, 1 IN 8 HR), SUBCUTANEOUS
     Route: 058
     Dates: start: 20071127, end: 20071208
  4. HEPARIN SODIUM [Concomitant]
  5. PHOSLO [Concomitant]
  6. NORVASC [Concomitant]
  7. ZOCOR [Concomitant]

REACTIONS (4)
  - ABDOMINAL PAIN [None]
  - AMMONIA INCREASED [None]
  - ENDOCARDITIS [None]
  - SEPSIS [None]
